FAERS Safety Report 24741923 (Version 1)
Quarter: 2024Q4

REPORT INFORMATION
  Report Type: Spontaneous
  Country: CA (occurrence: CA)
  Receive Date: 20241217
  Receipt Date: 20241217
  Transmission Date: 20250115
  Serious: Yes (Other)
  Sender: MERCK
  Company Number: CA-009507513-2412CAN004508

PATIENT
  Age: 68 Year
  Sex: Male

DRUGS (3)
  1. KEYTRUDA [Suspect]
     Active Substance: PEMBROLIZUMAB
     Dosage: UNK
     Route: 065
  2. PADCEV [Suspect]
     Active Substance: ENFORTUMAB VEDOTIN\ENFORTUMAB VEDOTIN-EJFV
     Dosage: 1.25 MILLIGRAM/KILOGRAM D1 AND D8 OF 21 DAY CYCLE, CYCLICAL
     Route: 042
     Dates: start: 20241030
  3. PADCEV [Suspect]
     Active Substance: ENFORTUMAB VEDOTIN\ENFORTUMAB VEDOTIN-EJFV
     Dosage: 1.25 MILLIGRAM/KILOGRAM D1 AND D8 OF 21 DAY CYCLE, CYCLICAL
     Route: 042
     Dates: start: 2024

REACTIONS (1)
  - Immunotoxicity [Unknown]
